FAERS Safety Report 17636225 (Version 1)
Quarter: 2020Q2

REPORT INFORMATION
  Report Type: Spontaneous
  Country: FI (occurrence: FI)
  Receive Date: 20200407
  Receipt Date: 20200407
  Transmission Date: 20200713
  Serious: Yes (Other)
  Sender: FDA-Public Use
  Company Number: FI-AMGEN-FINSP2020055753

PATIENT
  Age: 65 Year
  Sex: Male

DRUGS (35)
  1. NORSPAN [Concomitant]
     Active Substance: BUPRENORPHINE
     Indication: PRODUCT USED FOR UNKNOWN INDICATION
     Dosage: 1 DOSAGE FORM, WEEKLY
     Dates: start: 20170628
  2. PREDNISOLON [PREDNISOLONE] [Concomitant]
     Active Substance: PREDNISOLONE
     Dosage: UNK UNK, AS NEEDED
     Dates: start: 20140822
  3. VICTOZA [Concomitant]
     Active Substance: LIRAGLUTIDE
     Dosage: 1.8 MG, DAILY
     Dates: start: 20160331
  4. VI-SIBLIN [PLANTAGO OVATA] [Concomitant]
     Active Substance: HERBALS\PLANTAGO OVATA LEAF
     Dosage: UNK UNK, AS NEEDED
     Dates: start: 20150626
  5. METOPROLIN [Concomitant]
     Dosage: 50 MG, AS NEEDED
     Dates: start: 20191106
  6. TREXAN [METHOTREXATE] [Concomitant]
     Dosage: 10 MILLIGRAM, WEEKLY
     Dates: start: 20180830
  7. LEVEMIR [Concomitant]
     Active Substance: INSULIN DETEMIR
     Dosage: 46 INTERNATIONAL UNIT, UNK
     Dates: start: 20180723
  8. METOJECT [Concomitant]
     Active Substance: METHOTREXATE SODIUM
     Dosage: 10 MG, WEEKLY
     Dates: start: 20180829
  9. FURESIS [Concomitant]
     Active Substance: FUROSEMIDE
     Dosage: UNK, AS NEEDED
     Dates: start: 20130920
  10. AVAMYS [Concomitant]
     Active Substance: FLUTICASONE FUROATE
     Dosage: 55 MICROGRAM, DAILY
     Dates: start: 20181024
  11. NASONEX [Concomitant]
     Active Substance: MOMETASONE FUROATE
     Dates: start: 20170613
  12. KETOMEX [KETOCONAZOLE] [Concomitant]
     Indication: PRODUCT USED FOR UNKNOWN INDICATION
     Dosage: UNK UNK, AS NEEDED
     Dates: start: 20140328
  13. SIMVASTATIN RATIOPHARM [Concomitant]
     Active Substance: SIMVASTATIN
     Indication: PRODUCT USED FOR UNKNOWN INDICATION
     Dosage: 40 MILLIGRAM, DAILY
     Dates: start: 20190515
  14. OCULAC [POVIDONE] [Concomitant]
     Dosage: UNK
     Dates: start: 20190717
  15. KESTINE [Concomitant]
     Active Substance: EBASTINE
     Dosage: 10 MILLIGRAM, DAILY
     Dates: start: 20140526
  16. SPIRIVA RESPIMAT [Concomitant]
     Active Substance: TIOTROPIUM BROMIDE
     Dosage: INHALATION SOLUTION
     Dates: start: 20171108
  17. ATROVENT COMP HFA [Concomitant]
     Dosage: UNK UNK, AS NEEDED
     Dates: start: 20130816
  18. APURIN SANDOZ [Concomitant]
     Active Substance: ALLOPURINOL
     Indication: PRODUCT USED FOR UNKNOWN INDICATION
     Dosage: 200 MILLIGRAM, DAILY
     Dates: start: 20161215
  19. ENBREL [Suspect]
     Active Substance: ETANERCEPT
     Indication: PSORIATIC ARTHROPATHY
     Dosage: 50 MILLIGRAM, WEEKLY
     Route: 058
     Dates: start: 20170316, end: 20200312
  20. PANADOL FORTE [PARACETAMOL] [Concomitant]
     Dosage: UNK UNK, AS NEEDED
     Dates: start: 20170411
  21. PEGORION [Concomitant]
     Active Substance: POLYETHYLENE GLYCOL 4000
     Dates: start: 20181001
  22. SILDENAFIL ORION [Concomitant]
     Dosage: 50 MILLIGRAM, AS NEEDED
     Dates: start: 20191204
  23. FOLIC ACID. [Concomitant]
     Active Substance: FOLIC ACID
     Dosage: 1 DF, WEEKLY
     Dates: start: 20150318
  24. VENTOLINE [SALBUTAMOL SULFATE] [Concomitant]
     Active Substance: ALBUTEROL SULFATE
     Dates: start: 20171108
  25. METOPROLOL TARTRATE. [Concomitant]
     Active Substance: METOPROLOL TARTRATE
     Dosage: 47.5 MG, DAILY
     Dates: start: 20150602
  26. SOMAC [Concomitant]
     Active Substance: PANTOPRAZOLE SODIUM
     Dosage: 40 MILLIGRAM, AS NEEDED
     Dates: start: 20190329
  27. ADALAT [Concomitant]
     Active Substance: NIFEDIPINE
     Dosage: 60 MG, DAILY
     Dates: start: 20140205
  28. MICARDISPLUS [Concomitant]
     Active Substance: HYDROCHLOROTHIAZIDE\TELMISARTAN
     Dosage: 1 DOSAGE FORM, DAILY
     Dates: start: 20190515
  29. FLIXOTIDE [Concomitant]
     Active Substance: FLUTICASONE PROPIONATE
     Dosage: 500 MICROGRAM, DAILY
     Route: 055
     Dates: start: 20171108
  30. TENOX [TEMAZEPAM] [Concomitant]
     Indication: PRODUCT USED FOR UNKNOWN INDICATION
     Dosage: 30 MILLIGRAM, AS NEEDED
     Dates: start: 20161213
  31. DERMOVAT [CLOBETASOL PROPIONATE] [Concomitant]
     Dosage: UNK UNK, AS NEEDED
     Dates: start: 20170628
  32. ELOCON [Concomitant]
     Active Substance: MOMETASONE FUROATE
     Dosage: UNK, AS NEEDED
     Dates: start: 20150407
  33. OFTAGEL [Concomitant]
     Active Substance: CARBOMER
     Dosage: UNK, AS NEEDED
     Dates: start: 20190502
  34. METFOREM [Concomitant]
     Active Substance: METFORMIN HYDROCHLORIDE
     Dosage: 1000 MILLIGRAM, DAILY
     Dates: start: 20150602
  35. DIPROSALIC [Concomitant]
     Active Substance: BETAMETHASONE DIPROPIONATE
     Dosage: UNK, AS NEEDED
     Dates: start: 20191106

REACTIONS (5)
  - Colon dysplasia [Not Recovered/Not Resolved]
  - Adenocarcinoma of appendix [Not Recovered/Not Resolved]
  - Large intestine polyp [Not Recovered/Not Resolved]
  - Alanine aminotransferase increased [Not Recovered/Not Resolved]
  - Adenocarcinoma of colon [Not Recovered/Not Resolved]

NARRATIVE: CASE EVENT DATE: 20200228
